FAERS Safety Report 18466739 (Version 1)
Quarter: 2020Q4

REPORT INFORMATION
  Report Type: Spontaneous
  Country: US (occurrence: US)
  Receive Date: 20201105
  Receipt Date: 20201105
  Transmission Date: 20210114
  Serious: No
  Sender: FDA-Public Use
  Company Number: US-CELGENEUS-USA-20201008315

PATIENT
  Sex: Male

DRUGS (2)
  1. REVLIMID [Suspect]
     Active Substance: LENALIDOMIDE
     Indication: PLASMA CELL MYELOMA
     Dosage: 25 MILLIGRAM
     Route: 048
     Dates: start: 20181128
  2. REVLIMID [Suspect]
     Active Substance: LENALIDOMIDE
     Dosage: 1 5MG AND 1 2.5MG
     Route: 048
     Dates: start: 201907

REACTIONS (1)
  - Adverse drug reaction [Unknown]
